FAERS Safety Report 12608148 (Version 2)
Quarter: 2017Q1

REPORT INFORMATION
  Report Type: Spontaneous
  Country: US (occurrence: US)
  Receive Date: 20160729
  Receipt Date: 20170203
  Transmission Date: 20170428
  Serious: Yes (Other)
  Sender: FDA-Public Use
  Company Number: US-LPDUSPRD-20160654

PATIENT
  Sex: Male

DRUGS (2)
  1. PHENYTOIN SODIUM INJECTION (40042-009-02) [Suspect]
     Active Substance: PHENYTOIN SODIUM
     Dosage: DOSE UNKNOWN
     Route: 065
  2. VALPROIC ACID. [Suspect]
     Active Substance: VALPROIC ACID
     Dosage: DOSE UNKNOWN
     Route: 065

REACTIONS (2)
  - Drug interaction [Unknown]
  - Seizure [Unknown]
